FAERS Safety Report 18800787 (Version 1)
Quarter: 2021Q1

REPORT INFORMATION
  Report Type: Spontaneous
  Country: DE (occurrence: DE)
  Receive Date: 20210128
  Receipt Date: 20210128
  Transmission Date: 20210419
  Serious: Yes (Other)
  Sender: FDA-Public Use
  Company Number: DE-MYLANLABS-2021M1005048

PATIENT
  Age: 37 Year
  Sex: Female
  Weight: 83 kg

DRUGS (5)
  1. PAROXETINE. [Suspect]
     Active Substance: PAROXETINE
     Indication: FATIGUE
  2. FLUVOXAMINE [Suspect]
     Active Substance: FLUVOXAMINE
     Indication: FATIGUE
     Dosage: DIFFERENT DOSAGES
     Route: 048
     Dates: start: 2001, end: 2004
  3. FLUVOXAMINE [Suspect]
     Active Substance: FLUVOXAMINE
     Indication: SOCIAL PROBLEM
  4. PAROXETINE. [Suspect]
     Active Substance: PAROXETINE
     Indication: SOCIAL PROBLEM
     Dosage: 40 MG
     Dates: start: 2003, end: 2004
  5. ESCITALOPRAM [Suspect]
     Active Substance: ESCITALOPRAM OXALATE
     Indication: FATIGUE
     Dosage: UNKNOWN
     Route: 048
     Dates: start: 2004, end: 2004

REACTIONS (2)
  - Behaviour disorder [Unknown]
  - Suicidal behaviour [Unknown]
